FAERS Safety Report 6423409-3 (Version None)
Quarter: 2009Q4

REPORT INFORMATION
  Report Type: 
  Country: None (occurrence: None)
  Receive Date: 20091102
  Receipt Date: 20091026
  Transmission Date: 20100525
  Serious: Yes (Death)
  Sender: FDA-Public Use
  Company Number: A0814102A

PATIENT
  Sex: Male
  Weight: 80 kg

DRUGS (1)
  1. AVANDAMET [Suspect]
     Dates: start: 20080201, end: 20091024

REACTIONS (1)
  - DEATH [None]
